FAERS Safety Report 17159296 (Version 1)
Quarter: 2019Q4

REPORT INFORMATION
  Report Type: Spontaneous
  Country: US (occurrence: US)
  Receive Date: 20191215
  Receipt Date: 20191215
  Transmission Date: 20200122
  Serious: Yes (Hospitalization)
  Sender: FDA-Public Use
  Company Number: None

PATIENT
  Age: 79 Year
  Sex: Male
  Weight: 121 kg

DRUGS (10)
  1. APIXABAN [Suspect]
     Active Substance: APIXABAN
     Indication: ATRIAL FIBRILLATION
     Route: 048
     Dates: start: 20140501
  2. ASPIRIN. [Suspect]
     Active Substance: ASPIRIN
     Route: 048
     Dates: start: 20140114
  3. FOLIC ACID 400MCG DAILY [Concomitant]
  4. ATORVASTATIN 40MG DAILY [Concomitant]
  5. PANTOPRAZOLE 40MG DAILY [Concomitant]
  6. LEVOTHYROXINE 125MCG DAILY [Concomitant]
  7. FERROUS SULFATE 325MG DAILY [Concomitant]
  8. CARVEDILOL 12.5MG BID [Concomitant]
  9. FUROSEMIDE 20MG DAILY [Concomitant]
  10. AMIODARONE 200MG BID [Concomitant]

REACTIONS (4)
  - Haemoglobin decreased [None]
  - Gastrointestinal haemorrhage [None]
  - Diverticulum intestinal [None]
  - Presbyoesophagus [None]

NARRATIVE: CASE EVENT DATE: 20150401
